FAERS Safety Report 7221674-6 (Version None)
Quarter: 2010Q4

REPORT INFORMATION
  Report Type: 
  Country: None (occurrence: None)
  Receive Date: 20101230
  Receipt Date: 20090514
  Transmission Date: 20110411
  Serious: Yes (Other)
  Sender: FDA-Public Use
  Company Number: ADE2009-0590

PATIENT
  Sex: Female

DRUGS (2)
  1. AMOXICILLIN [Suspect]
     Indication: TOOTH ABSCESS
     Dosage: 1 CAPSULE, TID, ORAL
     Route: 048
     Dates: start: 20090416, end: 20090418
  2. IBUPROFEN [Concomitant]

REACTIONS (13)
  - CHILLS [None]
  - DIARRHOEA [None]
  - FEELING OF BODY TEMPERATURE CHANGE [None]
  - FOOD INTOLERANCE [None]
  - HAEMATOCHEZIA [None]
  - HYPERHIDROSIS [None]
  - HYPERTENSION [None]
  - HYPOPHAGIA [None]
  - NAUSEA [None]
  - PRODUCT ODOUR ABNORMAL [None]
  - PRODUCT TASTE ABNORMAL [None]
  - RETCHING [None]
  - VOMITING [None]
